FAERS Safety Report 4967339-2 (Version None)
Quarter: 2006Q2

REPORT INFORMATION
  Report Type: 
  Country: None (occurrence: None)
  Receive Date: 20060410
  Receipt Date: 20060328
  Transmission Date: 20061013
  Serious: Yes (Death, Life-Threatening, Hospitalization, Other)
  Sender: FDA-Public Use
  Company Number: US-JNJFOC-20060307150

PATIENT
  Sex: Female

DRUGS (7)
  1. REMINYL [Suspect]
     Route: 048
  2. AMARYL [Suspect]
     Indication: DRUG USE FOR UNKNOWN INDICATION
     Route: 048
  3. HYDROXYUREA [Concomitant]
  4. SYNTHROID [Concomitant]
  5. FOLIC ACID [Concomitant]
     Indication: VITAMIN SUPPLEMENTATION
  6. ASPIRIN [Concomitant]
     Indication: ANTICOAGULANT THERAPY
  7. BLOOD PRESSURE MED (NOS) [Concomitant]

REACTIONS (4)
  - BLOOD GLUCOSE DECREASED [None]
  - COMA [None]
  - DEATH [None]
  - MEDICATION ERROR [None]
